FAERS Safety Report 8100961-3 (Version None)
Quarter: 2012Q1

REPORT INFORMATION
  Report Type: 
  Country: None (occurrence: None)
  Receive Date: 20120129
  Receipt Date: 20111019
  Transmission Date: 20120608
  Serious: No
  Sender: FDA-Public Use
  Company Number: US-ABBOTT-11P-163-0866979-00

PATIENT
  Age: 70 Year
  Sex: Female
  Weight: 74.456 kg

DRUGS (3)
  1. PREPARATION H [Concomitant]
     Indication: HAEMORRHOIDS
  2. HUMIRA [Suspect]
     Indication: RHEUMATOID ARTHRITIS
     Dates: start: 20090101, end: 20110801
  3. HUMIRA [Suspect]
     Dates: start: 20111001

REACTIONS (4)
  - THYROID NEOPLASM [None]
  - HAEMORRHOIDAL HAEMORRHAGE [None]
  - NODULE [None]
  - ARTHRALGIA [None]
